FAERS Safety Report 12380102 (Version 2)
Quarter: 2016Q3

REPORT INFORMATION
  Report Type: Report from Study
  Country: US (occurrence: US)
  Receive Date: 20160518
  Receipt Date: 20160722
  Transmission Date: 20161109
  Serious: No
  Sender: FDA-Public Use
  Company Number: PHEH2016US012274

PATIENT
  Age: 23 Year
  Sex: Female

DRUGS (1)
  1. COSENTYX [Suspect]
     Active Substance: SECUKINUMAB
     Indication: PSORIASIS
     Dosage: 300 MG, UNK
     Route: 058
     Dates: start: 20160418, end: 20160504

REACTIONS (5)
  - Throat tightness [Recovered/Resolved]
  - Pruritus [Unknown]
  - Hypersensitivity [Recovered/Resolved]
  - Pharyngeal hypoaesthesia [Recovered/Resolved]
  - Hypoaesthesia oral [Recovered/Resolved]

NARRATIVE: CASE EVENT DATE: 20160505
